FAERS Safety Report 24946493 (Version 1)
Quarter: 2025Q1

REPORT INFORMATION
  Report Type: Spontaneous
  Country: US (occurrence: US)
  Receive Date: 20250210
  Receipt Date: 20250210
  Transmission Date: 20250408
  Serious: No
  Sender: ALEXION PHARMACEUTICALS
  Company Number: US-AstraZeneca-CH-00799833AP

PATIENT

DRUGS (1)
  1. BUDESONIDE\FORMOTEROL [Suspect]
     Active Substance: BUDESONIDE\FORMOTEROL
     Route: 065

REACTIONS (6)
  - Device defective [Unknown]
  - Product dose omission issue [Unknown]
  - Hypoacusis [Unknown]
  - Hypokinesia [Unknown]
  - Feeling abnormal [Unknown]
  - Device use issue [Unknown]
